FAERS Safety Report 12922941 (Version 1)
Quarter: 2016Q4

REPORT INFORMATION
  Report Type: Spontaneous
  Country: US (occurrence: US)
  Receive Date: 20161108
  Receipt Date: 20161108
  Transmission Date: 20170207
  Serious: No
  Sender: FDA-Public Use
  Company Number: US-PFIZER INC-2016515198

PATIENT
  Sex: Female

DRUGS (1)
  1. KERYDIN [Suspect]
     Active Substance: TAVABOROLE
     Dosage: UNK

REACTIONS (5)
  - Agitation [Unknown]
  - Chest pain [Unknown]
  - Product leakage [Unknown]
  - Anxiety [Unknown]
  - Fatigue [Unknown]
